FAERS Safety Report 4630930-7 (Version None)
Quarter: 2005Q2

REPORT INFORMATION
  Report Type: 
  Country: None (occurrence: None)
  Receive Date: 20050407
  Receipt Date: 20050407
  Transmission Date: 20051028
  Serious: Yes (Hospitalization)
  Sender: FDA-Public Use
  Company Number: None

PATIENT
  Age: 53 Year
  Sex: Male
  Weight: 76 kg

DRUGS (2)
  1. DAPSONE [Suspect]
     Indication: PNEUMOCYSTIS JIROVECI PNEUMONIA
     Dosage: 100MG, 100MGQD, ORAL
     Route: 048
     Dates: start: 20050325, end: 20050328
  2. DAPSONE [Suspect]
     Indication: PROPHYLAXIS
     Dosage: 100MG, 100MGQD, ORAL
     Route: 048
     Dates: start: 20050325, end: 20050328

REACTIONS (2)
  - ANGIONEUROTIC OEDEMA [None]
  - ERYTHEMA MULTIFORME [None]
